FAERS Safety Report 17253280 (Version 2)
Quarter: 2023Q1

REPORT INFORMATION
  Report Type: Spontaneous
  Country: US (occurrence: US)
  Receive Date: 20200109
  Receipt Date: 20230310
  Transmission Date: 20230417
  Serious: Yes (Other)
  Sender: FDA-Public Use
  Company Number: US-NOVARTISTESTPH-NVSC2020US003363

PATIENT

DRUGS (1)
  1. EVEROLIMUS [Suspect]
     Active Substance: EVEROLIMUS
     Indication: Product used for unknown indication
     Dosage: 5 MG, QD (ON DAYS 1-21 OF EACH 28-DAY CYCLE)
     Route: 048

REACTIONS (2)
  - Febrile neutropenia [Unknown]
  - Upper respiratory tract infection [Unknown]
